FAERS Safety Report 15080001 (Version 1)
Quarter: 2018Q2

REPORT INFORMATION
  Report Type: Spontaneous
  Country: US (occurrence: US)
  Receive Date: 20180607
  Receipt Date: 20180607
  Transmission Date: 20180711
  Serious: Yes (Other)
  Sender: FDA-Public Use
  Company Number: None

PATIENT
  Age: 59 Year
  Sex: Male
  Weight: 86.85 kg

DRUGS (6)
  1. ENALAPUL [Concomitant]
  2. FLUTICASONE PROPIONATE NASAL SPRAY USP [Suspect]
     Active Substance: FLUTICASONE PROPIONATE
     Indication: SINUS DISORDER
     Dosage: ?          OTHER STRENGTH:MCG;QUANTITY:2 SPRAY(S);?
  3. NOVOTEL [Concomitant]
  4. MEN^S MULTIPLE VITAMIN [Concomitant]
  5. FLUTICASONE PROPIONATE NASAL SPRAY USP [Suspect]
     Active Substance: FLUTICASONE PROPIONATE
     Indication: MULTIPLE ALLERGIES
     Dosage: ?          OTHER STRENGTH:MCG;QUANTITY:2 SPRAY(S);?
  6. FLUTICASONE PROPIONATE NASAL SPRAY [Concomitant]
     Active Substance: FLUTICASONE PROPIONATE

REACTIONS (3)
  - Rhinalgia [None]
  - Epistaxis [None]
  - Nasal ulcer [None]

NARRATIVE: CASE EVENT DATE: 20180515
